FAERS Safety Report 14972254 (Version 1)
Quarter: 2018Q2

REPORT INFORMATION
  Report Type: Spontaneous
  Country: US (occurrence: US)
  Receive Date: 20180605
  Receipt Date: 20180605
  Transmission Date: 20180711
  Serious: Yes (Other)
  Sender: FDA-Public Use
  Company Number: US-HETERO CORPORATE-HET2018US00492

PATIENT
  Age: 69 Year
  Sex: Female

DRUGS (3)
  1. MIRTAZAPINE A [Suspect]
     Active Substance: MIRTAZAPINE
     Indication: DEPRESSION
     Dosage: UNK
     Route: 065
  2. CITALOPRAM [Suspect]
     Active Substance: CITALOPRAM HYDROBROMIDE
     Indication: DEPRESSION
     Route: 065
  3. MIRTAZAPINE A [Suspect]
     Active Substance: MIRTAZAPINE
     Indication: INCREASED APPETITE

REACTIONS (1)
  - Adrenal insufficiency [Recovering/Resolving]
